FAERS Safety Report 7620121-X (Version None)
Quarter: 2011Q3

REPORT INFORMATION
  Report Type: 
  Country: None (occurrence: None)
  Receive Date: 20110719
  Receipt Date: 20110713
  Transmission Date: 20111222
  Serious: Yes (Hospitalization, Other)
  Sender: FDA-Public Use
  Company Number: JP-BRISTOL-MYERS SQUIBB COMPANY-15894710

PATIENT
  Age: 70 Year
  Sex: Male

DRUGS (1)
  1. MAXIPIME [Suspect]
     Indication: INFECTION
     Dosage: INTERRUPTED:29JUN11
     Route: 041
     Dates: start: 20110608

REACTIONS (2)
  - HYPOAESTHESIA [None]
  - OVERDOSE [None]
